FAERS Safety Report 24401031 (Version 1)
Quarter: 2024Q4

REPORT INFORMATION
  Report Type: Spontaneous
  Country: US (occurrence: US)
  Receive Date: 20241006
  Receipt Date: 20241006
  Transmission Date: 20250115
  Serious: No
  Sender: BAUSCH AND LOMB
  Company Number: US-BAUSCHBL-2024BNL034169

PATIENT
  Age: 78 Year
  Sex: Female

DRUGS (2)
  1. XIIDRA [Suspect]
     Active Substance: LIFITEGRAST
     Indication: Dry eye
     Dosage: FOR ONE MONTH
     Route: 047
  2. XIIDRA [Suspect]
     Active Substance: LIFITEGRAST
     Route: 047

REACTIONS (8)
  - Vision blurred [Unknown]
  - Eye irritation [Unknown]
  - Eye pruritus [Unknown]
  - Ocular hyperaemia [Recovered/Resolved]
  - Burning sensation [Unknown]
  - Periorbital pain [Unknown]
  - Retinal disorder [Unknown]
  - Prescribed underdose [Unknown]
